FAERS Safety Report 15857868 (Version 2)
Quarter: 2019Q2

REPORT INFORMATION
  Report Type: Spontaneous
  Country: US (occurrence: US)
  Receive Date: 20190123
  Receipt Date: 20190415
  Transmission Date: 20190711
  Serious: Yes (Death, Other)
  Sender: FDA-Public Use
  Company Number: US-ASTRAZENECA-2018SF13831

PATIENT
  Sex: Male

DRUGS (25)
  1. LASIX [Concomitant]
     Active Substance: FUROSEMIDE
     Dates: start: 20080229
  2. OMEPRAZOLE. [Suspect]
     Active Substance: OMEPRAZOLE
     Indication: GASTROOESOPHAGEAL REFLUX DISEASE
     Dosage: GENERIC
     Route: 065
     Dates: start: 20130104, end: 20130903
  3. PREDNISONE. [Concomitant]
     Active Substance: PREDNISONE
     Dates: start: 20080229
  4. NEXIUM [Suspect]
     Active Substance: ESOMEPRAZOLE MAGNESIUM
     Indication: GASTROOESOPHAGEAL REFLUX DISEASE
     Route: 048
     Dates: start: 200802, end: 201301
  5. NEXIUM [Suspect]
     Active Substance: ESOMEPRAZOLE MAGNESIUM
     Indication: GASTROOESOPHAGEAL REFLUX DISEASE
     Route: 048
     Dates: start: 20100916
  6. NEXIUM [Suspect]
     Active Substance: ESOMEPRAZOLE MAGNESIUM
     Indication: GASTROOESOPHAGEAL REFLUX DISEASE
     Dosage: GENERIC
     Route: 065
     Dates: start: 20080304, end: 20121226
  7. APRESOLINE HYDROCHLORIDE [Concomitant]
     Active Substance: HYDRALAZINE HYDROCHLORIDE
     Dosage: HYDRALAZINE- 3 TIMES A DAY
     Dates: start: 20100916
  8. NITRO-BID [Concomitant]
     Active Substance: NITROGLYCERIN
     Dates: start: 20080229
  9. K-DUR [Concomitant]
     Active Substance: POTASSIUM CHLORIDE
     Dates: start: 20080229
  10. PROVENTIL [Concomitant]
     Active Substance: ALBUTEROL
     Dates: start: 20080229
  11. INSULIN [Concomitant]
     Active Substance: INSULIN NOS
     Dosage: 70/30 AT 40 UNITS SUBCUTANEOUS Q.A.M. AND INSULIN 70/30 AT 40
     Route: 058
     Dates: start: 20100916
  12. NEXIUM [Suspect]
     Active Substance: ESOMEPRAZOLE MAGNESIUM
     Indication: GASTROOESOPHAGEAL REFLUX DISEASE
     Route: 048
     Dates: start: 20080229, end: 20101016
  13. ATROVENT [Concomitant]
     Active Substance: IPRATROPIUM BROMIDE
     Dates: start: 20080229
  14. APRESOLINE HYDROCHLORIDE [Concomitant]
     Active Substance: HYDRALAZINE HYDROCHLORIDE
     Dates: start: 20080229
  15. METOPROLOL. [Concomitant]
     Active Substance: METOPROLOL
     Dosage: XL-200 MG ONCE DAILY
     Dates: start: 20100916
  16. CAPTOPRIL. [Concomitant]
     Active Substance: CAPTOPRIL
     Dates: start: 20080229
  17. TOPROL XL [Concomitant]
     Active Substance: METOPROLOL SUCCINATE
     Dates: start: 20080229
  18. HEPARIN [Concomitant]
     Active Substance: HEPARIN SODIUM
     Dates: start: 20080229
  19. LISINOPRIL. [Concomitant]
     Active Substance: LISINOPRIL
     Dates: start: 20080229
  20. ASPIRIN. [Concomitant]
     Active Substance: ASPIRIN
     Dates: start: 20080229
  21. ASPIRIN. [Concomitant]
     Active Substance: ASPIRIN
     Dates: start: 20100916
  22. VENTOLIN [Concomitant]
     Active Substance: ALBUTEROL SULFATE
     Dates: start: 20080229
  23. ISORDIL [Concomitant]
     Active Substance: ISOSORBIDE DINITRATE
     Dates: start: 20080229
  24. ZOCOR [Concomitant]
     Active Substance: SIMVASTATIN
     Dates: start: 20080229
  25. IMDUR [Concomitant]
     Active Substance: ISOSORBIDE MONONITRATE
     Dates: start: 20100916

REACTIONS (3)
  - Chronic kidney disease [Not Recovered/Not Resolved]
  - Acute kidney injury [Not Recovered/Not Resolved]
  - End stage renal disease [Unknown]
